FAERS Safety Report 6368771-5 (Version None)
Quarter: 2009Q3

REPORT INFORMATION
  Report Type: 
  Country: None (occurrence: None)
  Receive Date: 20090922
  Receipt Date: 20090915
  Transmission Date: 20100115
  Serious: Yes (Hospitalization, Disabling, Other)
  Sender: FDA-Public Use
  Company Number: US-MERCK-0805USA00411

PATIENT
  Age: 68 Year
  Sex: Female
  Weight: 75 kg

DRUGS (5)
  1. FOSAMAX [Suspect]
     Indication: OSTEOPOROSIS
     Route: 048
     Dates: start: 19970501, end: 20010709
  2. FOSAMAX PLUS D [Suspect]
     Indication: OSTEOPOROSIS
     Route: 048
     Dates: start: 20020701, end: 20020827
  3. FOSAMAX PLUS D [Suspect]
     Route: 048
     Dates: start: 20060911, end: 20070107
  4. ACTONEL [Suspect]
     Indication: OSTEOPOROSIS
     Route: 065
     Dates: start: 20010709, end: 20060626
  5. ZOVIRAX [Concomitant]
     Indication: HERPES VIRUS INFECTION
     Route: 065
     Dates: start: 19980115

REACTIONS (40)
  - ABSCESS ORAL [None]
  - CATARACT [None]
  - CELLULITIS [None]
  - CEREBRAL ISCHAEMIA [None]
  - CERVICAL CORD COMPRESSION [None]
  - DENTAL CARIES [None]
  - DIVERTICULITIS [None]
  - DIVERTICULUM INTESTINAL [None]
  - DIZZINESS [None]
  - DRUG HYPERSENSITIVITY [None]
  - DYSPHAGIA [None]
  - FALL [None]
  - FISTULA DISCHARGE [None]
  - FOOT FRACTURE [None]
  - HAEMATOCHEZIA [None]
  - HAEMORRHOIDS [None]
  - HEADACHE [None]
  - HYPERLIPIDAEMIA [None]
  - HYPERTENSION [None]
  - HYPOAESTHESIA [None]
  - IMPAIRED HEALING [None]
  - INTERVERTEBRAL DISC DEGENERATION [None]
  - JAW DISORDER [None]
  - LABILE HYPERTENSION [None]
  - LUMBAR VERTEBRAL FRACTURE [None]
  - MICTURITION URGENCY [None]
  - MULTIPLE FRACTURES [None]
  - OCCULT BLOOD POSITIVE [None]
  - ORAL DISORDER [None]
  - OSTEOMYELITIS [None]
  - OSTEONECROSIS [None]
  - PAIN [None]
  - PARAESTHESIA [None]
  - PERIODONTAL DISEASE [None]
  - RETINAL DISORDER [None]
  - ROAD TRAFFIC ACCIDENT [None]
  - SUBCUTANEOUS ABSCESS [None]
  - TOOTH FRACTURE [None]
  - UPPER LIMB FRACTURE [None]
  - WRIST FRACTURE [None]
